FAERS Safety Report 25085867 (Version 3)
Quarter: 2025Q2

REPORT INFORMATION
  Report Type: Report from Study
  Country: US (occurrence: US)
  Receive Date: 20250317
  Receipt Date: 20250520
  Transmission Date: 20250717
  Serious: Yes (Hospitalization)
  Sender: STEMLINE THERAPEUTICS
  Company Number: US-STEMLINE THERAPEUTICS B.V.-2025-STML-US000328

PATIENT

DRUGS (2)
  1. ORSERDU [Suspect]
     Active Substance: ELACESTRANT
     Indication: Breast cancer metastatic
     Dosage: 345 MG, DAILY (1PILL)
     Route: 065
     Dates: start: 20240612
  2. ORSERDU [Suspect]
     Active Substance: ELACESTRANT
     Dosage: 345 MG, DAILY (1PILL)
     Route: 065
     Dates: start: 20250103, end: 20250218

REACTIONS (9)
  - Blood calcium abnormal [Unknown]
  - Myalgia [Unknown]
  - Muscle spasms [Recovering/Resolving]
  - Pain [Recovering/Resolving]
  - Bone pain [Unknown]
  - Constipation [Unknown]
  - Back pain [Recovering/Resolving]
  - Product availability issue [Unknown]
  - Product use issue [Unknown]

NARRATIVE: CASE EVENT DATE: 20250101
